FAERS Safety Report 7717343-6 (Version None)
Quarter: 2011Q3

REPORT INFORMATION
  Report Type: 
  Country: None (occurrence: None)
  Receive Date: 20110830
  Receipt Date: 20110823
  Transmission Date: 20111222
  Serious: Yes (Other)
  Sender: FDA-Public Use
  Company Number: CA-JNJFOC-20100902195

PATIENT
  Sex: Female
  Weight: 53.6 kg

DRUGS (4)
  1. REMICADE [Suspect]
     Indication: CROHN'S DISEASE
     Route: 042
     Dates: start: 20070827
  2. REMICADE [Suspect]
     Route: 042
     Dates: start: 20100902
  3. SOLU-CORTEF [Concomitant]
     Indication: PREMEDICATION
     Route: 042
  4. DESLORATADINE [Concomitant]
     Indication: PREMEDICATION
     Route: 048

REACTIONS (5)
  - WEIGHT DECREASED [None]
  - CHOLECYSTECTOMY [None]
  - CROHN'S DISEASE [None]
  - CACHEXIA [None]
  - ABDOMINAL PAIN [None]
